FAERS Safety Report 9561341 (Version 1)
Quarter: 2013Q3

REPORT INFORMATION
  Report Type: Spontaneous
  Country: US (occurrence: US)
  Receive Date: 20130927
  Receipt Date: 20130927
  Transmission Date: 20140515
  Serious: No
  Sender: FDA-Public Use
  Company Number: US-BIOGENIDEC-2013BI057966

PATIENT
  Age: 48 Year
  Sex: Female

DRUGS (10)
  1. TECFIDERA [Suspect]
     Indication: MULTIPLE SCLEROSIS
     Route: 048
     Dates: start: 20130601
  2. TECFIDERA [Suspect]
     Indication: MULTIPLE SCLEROSIS
     Route: 048
     Dates: start: 20130608
  3. TRAZODONE [Concomitant]
  4. WELLBUTRIN [Concomitant]
  5. VERAPAMIL [Concomitant]
  6. NEFAZODONE [Concomitant]
  7. ESTRADIOL [Concomitant]
  8. TESTOSTERONE [Concomitant]
  9. ASPIRIN [Concomitant]
  10. ZOLPIDEM [Concomitant]

REACTIONS (7)
  - Influenza like illness [Unknown]
  - Swelling face [Unknown]
  - General symptom [Unknown]
  - Flushing [Unknown]
  - Nausea [Not Recovered/Not Resolved]
  - Asthenia [Not Recovered/Not Resolved]
  - Multiple sclerosis relapse [Not Recovered/Not Resolved]
